FAERS Safety Report 9166625 (Version 1)
Quarter: 2013Q1

REPORT INFORMATION
  Report Type: Spontaneous
  Country: US (occurrence: US)
  Receive Date: 20130315
  Receipt Date: 20130315
  Transmission Date: 20140127
  Serious: No
  Sender: FDA-Public Use
  Company Number: US-009507513-1303USA005763

PATIENT
  Sex: Female

DRUGS (1)
  1. NUVARING [Suspect]
     Dosage: 1 DF, 3 WEEKS RING
     Route: 067
     Dates: start: 201303

REACTIONS (3)
  - Incorrect storage of drug [Unknown]
  - Product shape issue [Unknown]
  - No adverse event [Unknown]
